FAERS Safety Report 19706331 (Version 1)
Quarter: 2021Q3

REPORT INFORMATION
  Report Type: Other
  Country: CN (occurrence: CN)
  Receive Date: 20210817
  Receipt Date: 20210817
  Transmission Date: 20211014
  Serious: Yes (Death, Other)
  Sender: FDA-Public Use
  Company Number: CN-ROCHE-1748691

PATIENT
  Age: 46 Year
  Sex: Female
  Weight: 65 kg

DRUGS (1)
  1. AVASTIN [Suspect]
     Active Substance: BEVACIZUMAB
     Indication: COLORECTAL CANCER
     Dosage: AND 300 MG ONCE IN TWO WEEKS
     Route: 041
     Dates: start: 20150927

REACTIONS (4)
  - Intestinal obstruction [Unknown]
  - Nasopharyngitis [Unknown]
  - Dysphonia [Unknown]
  - Ascites [Fatal]
